FAERS Safety Report 6625328-6 (Version None)
Quarter: 2010Q1

REPORT INFORMATION
  Report Type: 
  Country: None (occurrence: None)
  Receive Date: 20100310
  Receipt Date: 20090819
  Transmission Date: 20100710
  Serious: No
  Sender: FDA-Public Use
  Company Number: US-BIOGENIDEC-2009BI026397

PATIENT
  Age: 43 Year
  Sex: Male

DRUGS (1)
  1. AVONEX [Suspect]
     Indication: MULTIPLE SCLEROSIS
     Route: 030
     Dates: start: 20060401

REACTIONS (8)
  - FALL [None]
  - GAIT DISTURBANCE [None]
  - HEAD INJURY [None]
  - INITIAL INSOMNIA [None]
  - LOSS OF CONSCIOUSNESS [None]
  - PARAESTHESIA [None]
  - PSYCHOMOTOR HYPERACTIVITY [None]
  - SOMNOLENCE [None]
